FAERS Safety Report 17105832 (Version 2)
Quarter: 2020Q1

REPORT INFORMATION
  Report Type: Spontaneous
  Country: US (occurrence: US)
  Receive Date: 20191203
  Receipt Date: 20200110
  Transmission Date: 20200409
  Serious: Yes (Hospitalization, Other)
  Sender: FDA-Public Use
  Company Number: US-PFIZER INC-2019516418

PATIENT
  Age: 73 Year
  Sex: Female
  Weight: 76.66 kg

DRUGS (4)
  1. TAMOXIFEN [Concomitant]
     Active Substance: TAMOXIFEN
     Dosage: UNK
     Dates: start: 20151001
  2. TIKOSYN [Suspect]
     Active Substance: DOFETILIDE
     Indication: ATRIAL FIBRILLATION
     Dosage: 250 MCG TWICE PER DAY
     Route: 048
     Dates: start: 1989
  3. TAMOXIFEN [Concomitant]
     Active Substance: TAMOXIFEN
     Dosage: UNK
     Dates: start: 2014
  4. TIKOSYN [Suspect]
     Active Substance: DOFETILIDE
     Dosage: 250 MCG TWICE PER DAY
     Dates: start: 20130813

REACTIONS (4)
  - Neoplasm malignant [Not Recovered/Not Resolved]
  - Breast cancer [Not Recovered/Not Resolved]
  - Intentional dose omission [Unknown]
  - B-cell lymphoma [Not Recovered/Not Resolved]

NARRATIVE: CASE EVENT DATE: 2014
